FAERS Safety Report 9059281 (Version 2)
Quarter: 2013Q3

REPORT INFORMATION
  Report Type: Spontaneous
  Country: GB (occurrence: GB)
  Receive Date: 20130211
  Receipt Date: 20130910
  Transmission Date: 20140515
  Serious: Yes (Death, Other)
  Sender: FDA-Public Use
  Company Number: GB-ELI_LILLY_AND_COMPANY-GB201302000868

PATIENT
  Age: 50 Year
  Sex: Male
  Weight: 42 kg

DRUGS (2)
  1. EFIENT [Suspect]
  2. ASPIRIN [Concomitant]

REACTIONS (3)
  - Thrombosis in device [Fatal]
  - Drug ineffective [Unknown]
  - Treatment noncompliance [Unknown]
